FAERS Safety Report 10788255 (Version 4)
Quarter: 2017Q3

REPORT INFORMATION
  Report Type: Spontaneous
  Country: US (occurrence: US)
  Receive Date: 20150212
  Receipt Date: 20170719
  Transmission Date: 20171127
  Serious: No
  Sender: FDA-Public Use
  Company Number: US-ASTRAZENECA-2015SE11949

PATIENT
  Age: 66 Year
  Sex: Female
  Weight: 65.8 kg

DRUGS (32)
  1. SYMBICORT [Suspect]
     Active Substance: BUDESONIDE\FORMOTEROL FUMARATE DIHYDRATE
     Indication: ASTHMA
     Dosage: UNKNOWN UNKNOWN
     Route: 055
     Dates: start: 2015
  2. SYMBICORT [Suspect]
     Active Substance: BUDESONIDE\FORMOTEROL FUMARATE DIHYDRATE
     Indication: ASTHMA
     Dosage: TWO PUFFS TWICE DAILY UP TO TWO PUFFS THREE TIMES DAILY (OFF LABEL USE) UNKNOWN
     Route: 055
     Dates: start: 20170525
  3. SYMBICORT [Suspect]
     Active Substance: BUDESONIDE\FORMOTEROL FUMARATE DIHYDRATE
     Indication: CHRONIC OBSTRUCTIVE PULMONARY DISEASE
     Dosage: TWO PUFFS TWICE DAILY UP TO TWO PUFFS THREE TIMES DAILY (OFF LABEL USE) UNKNOWN
     Route: 055
     Dates: start: 20170525
  4. LISINOPRIL. [Suspect]
     Active Substance: LISINOPRIL
     Indication: HYPERTENSION
     Route: 048
     Dates: start: 20170525
  5. PROTONIX [Concomitant]
     Active Substance: PANTOPRAZOLE SODIUM
     Indication: HIATUS HERNIA
     Route: 048
     Dates: start: 2004
  6. PROTONIX [Concomitant]
     Active Substance: PANTOPRAZOLE SODIUM
     Indication: ABDOMINAL DISCOMFORT
     Route: 048
     Dates: start: 2007
  7. VALIUM [Concomitant]
     Active Substance: DIAZEPAM
     Indication: MUSCLE RELAXANT THERAPY
     Dosage: 5 MG, THRICE A DAY
     Route: 048
  8. SYMBICORT [Suspect]
     Active Substance: BUDESONIDE\FORMOTEROL FUMARATE DIHYDRATE
     Indication: CHRONIC OBSTRUCTIVE PULMONARY DISEASE
     Dosage: 160/4.5 MCG 2 PUFFS,TWO TIMES A DAY UNKNOWN
     Route: 055
     Dates: start: 20150126
  9. PROTONIX [Concomitant]
     Active Substance: PANTOPRAZOLE SODIUM
     Indication: ABDOMINAL DISCOMFORT
     Route: 048
     Dates: start: 2004
  10. VALIUM [Concomitant]
     Active Substance: DIAZEPAM
     Indication: ANXIETY
     Route: 048
     Dates: start: 2010
  11. ATROVENT [Concomitant]
     Active Substance: IPRATROPIUM BROMIDE
     Indication: DYSPNOEA
     Route: 055
  12. SYMBICORT [Suspect]
     Active Substance: BUDESONIDE\FORMOTEROL FUMARATE DIHYDRATE
     Indication: ASTHMA
     Dosage: 160/4.5 MCG 2 PUFFS,TWO TIMES A DAY UNKNOWN
     Route: 055
     Dates: start: 20150126
  13. VALIUM [Concomitant]
     Active Substance: DIAZEPAM
     Indication: MUSCLE RELAXANT THERAPY
     Route: 048
     Dates: start: 2010
  14. NEXIUM [Suspect]
     Active Substance: ESOMEPRAZOLE MAGNESIUM
     Indication: DYSPEPSIA
     Route: 048
  15. VALIUM [Concomitant]
     Active Substance: DIAZEPAM
     Indication: SEIZURE
     Dosage: 5 MG, THRICE A DAY
     Route: 048
  16. VALIUM [Concomitant]
     Active Substance: DIAZEPAM
     Indication: TOXICITY TO VARIOUS AGENTS
     Dosage: 5 MG, THRICE A DAY
     Route: 048
  17. SYMBICORT [Suspect]
     Active Substance: BUDESONIDE\FORMOTEROL FUMARATE DIHYDRATE
     Indication: EMPHYSEMA
     Dosage: UNKNOWN UNKNOWN
     Route: 055
     Dates: start: 2015
  18. SYMBICORT [Suspect]
     Active Substance: BUDESONIDE\FORMOTEROL FUMARATE DIHYDRATE
     Indication: CHRONIC OBSTRUCTIVE PULMONARY DISEASE
     Dosage: UNKNOWN UNKNOWN
     Route: 055
     Dates: start: 2015
  19. PROTONIX [Concomitant]
     Active Substance: PANTOPRAZOLE SODIUM
     Indication: HIATUS HERNIA
     Route: 048
     Dates: start: 2007
  20. VALIUM [Concomitant]
     Active Substance: DIAZEPAM
     Indication: CLUSTER HEADACHE
     Route: 048
     Dates: start: 2010
  21. VALIUM [Concomitant]
     Active Substance: DIAZEPAM
     Indication: ANXIETY
     Dosage: 5 MG, THRICE A DAY
     Route: 048
  22. SYMBICORT [Suspect]
     Active Substance: BUDESONIDE\FORMOTEROL FUMARATE DIHYDRATE
     Indication: EMPHYSEMA
     Dosage: 160/4.5 MCG FOUR TIMES A DAY UNKNOWN
     Route: 055
  23. PROAIR HFA [Concomitant]
     Active Substance: ALBUTEROL SULFATE
     Indication: ASTHMA
     Dosage: 2.0DF AS REQUIRED
     Route: 055
  24. VALIUM [Concomitant]
     Active Substance: DIAZEPAM
     Indication: CLUSTER HEADACHE
     Dosage: 5 MG, THRICE A DAY
     Route: 048
  25. XOPENEX [Concomitant]
     Active Substance: LEVALBUTEROL HYDROCHLORIDE
     Dosage: 45.0MG AS REQUIRED
  26. SYMBICORT [Suspect]
     Active Substance: BUDESONIDE\FORMOTEROL FUMARATE DIHYDRATE
     Indication: EMPHYSEMA
     Dosage: 160/4.5 MCG 2 PUFFS,TWO TIMES A DAY UNKNOWN
     Route: 055
     Dates: start: 20150126
  27. SYMBICORT [Suspect]
     Active Substance: BUDESONIDE\FORMOTEROL FUMARATE DIHYDRATE
     Indication: EMPHYSEMA
     Dosage: TWO PUFFS TWICE DAILY UP TO TWO PUFFS THREE TIMES DAILY (OFF LABEL USE) UNKNOWN
     Route: 055
     Dates: start: 20170525
  28. VALIUM [Concomitant]
     Active Substance: DIAZEPAM
     Indication: SEIZURE
     Route: 048
     Dates: start: 2010
  29. VALIUM [Concomitant]
     Active Substance: DIAZEPAM
     Indication: TOXICITY TO VARIOUS AGENTS
     Route: 048
     Dates: start: 2010
  30. BABY ASPIRIN [Concomitant]
     Active Substance: ASPIRIN
     Dosage: DAILY
     Route: 048
  31. SYMBICORT [Suspect]
     Active Substance: BUDESONIDE\FORMOTEROL FUMARATE DIHYDRATE
     Indication: ASTHMA
     Dosage: 160/4.5 MCG FOUR TIMES A DAY UNKNOWN
     Route: 055
  32. SYMBICORT [Suspect]
     Active Substance: BUDESONIDE\FORMOTEROL FUMARATE DIHYDRATE
     Indication: CHRONIC OBSTRUCTIVE PULMONARY DISEASE
     Dosage: 160/4.5 MCG FOUR TIMES A DAY UNKNOWN
     Route: 055

REACTIONS (18)
  - Sneezing [Not Recovered/Not Resolved]
  - Weight increased [Unknown]
  - Drug ineffective [Unknown]
  - Dyspnoea [Unknown]
  - Contusion [Not Recovered/Not Resolved]
  - Hypertension [Not Recovered/Not Resolved]
  - Respiratory disorder [Unknown]
  - Intentional product misuse [Not Recovered/Not Resolved]
  - Stress [Unknown]
  - Off label use [Not Recovered/Not Resolved]
  - Cough [Not Recovered/Not Resolved]
  - Nervousness [Not Recovered/Not Resolved]
  - Product use issue [Not Recovered/Not Resolved]
  - Product quality issue [Unknown]
  - Memory impairment [Not Recovered/Not Resolved]
  - Secretion discharge [Not Recovered/Not Resolved]
  - Rhinorrhoea [Not Recovered/Not Resolved]
  - Malaise [Not Recovered/Not Resolved]

NARRATIVE: CASE EVENT DATE: 2014
